FAERS Safety Report 11068827 (Version 1)
Quarter: 2015Q2

REPORT INFORMATION
  Report Type: Spontaneous
  Country: US (occurrence: None)
  Receive Date: 20150424
  Receipt Date: 20150424
  Transmission Date: 20150821
  Serious: No
  Sender: FDA-Public Use
  Company Number: None

PATIENT
  Age: 37 Year
  Sex: Female
  Weight: 58.97 kg

DRUGS (1)
  1. HYDROMORPHONE [Suspect]
     Active Substance: HYDROMORPHONE
     Indication: MIGRAINE
     Dosage: HYDROMORPHIONE 1MG, PRN/AS NEEDED, INTRAVENOUS
     Route: 042
     Dates: start: 20150420

REACTIONS (2)
  - Pruritus [None]
  - Seizure [None]

NARRATIVE: CASE EVENT DATE: 20150420
